FAERS Safety Report 4881887-5 (Version None)
Quarter: 2006Q1

REPORT INFORMATION
  Report Type: 
  Country: None (occurrence: None)
  Receive Date: 20060111
  Receipt Date: 20060111
  Transmission Date: 20060701
  Serious: Yes (Hospitalization)
  Sender: FDA-Public Use
  Company Number: None

PATIENT
  Age: 51 Year
  Sex: Male
  Weight: 77.1 kg

DRUGS (1)
  1. CEFAZOLIN [Suspect]
     Indication: CELLULITIS
     Dosage: 3G, 1G Q8H, INTRAVEN
     Route: 042
     Dates: start: 20050930, end: 20051003

REACTIONS (1)
  - ANGIONEUROTIC OEDEMA [None]
